FAERS Safety Report 8540946-6 (Version None)
Quarter: 2012Q3

REPORT INFORMATION
  Report Type: 
  Country: None (occurrence: None)
  Receive Date: 20120726
  Receipt Date: 20110809
  Transmission Date: 20120928
  Serious: No
  Sender: FDA-Public Use
  Company Number: US-ASTRAZENECA-2011SE47853

PATIENT

DRUGS (7)
  1. TRAZODONE HYDROCHLORIDE [Concomitant]
  2. SEROQUEL [Suspect]
     Route: 048
  3. SEROQUEL [Suspect]
     Route: 048
  4. SEROQUEL [Suspect]
     Route: 048
  5. LYRICA [Concomitant]
  6. PERCOCET [Concomitant]
  7. TRILEPTAL [Concomitant]

REACTIONS (6)
  - PAIN [None]
  - ACTIVITIES OF DAILY LIVING IMPAIRED [None]
  - FATIGUE [None]
  - VERTIGO [None]
  - MOOD ALTERED [None]
  - INSOMNIA [None]
